FAERS Safety Report 14499710 (Version 1)
Quarter: 2018Q1

REPORT INFORMATION
  Report Type: Spontaneous
  Country: GB (occurrence: FR)
  Receive Date: 20180207
  Receipt Date: 20180207
  Transmission Date: 20180509
  Serious: Yes (Hospitalization, Other)
  Sender: FDA-Public Use
  Company Number: FR-FRESENIUS KABI-FK201801424

PATIENT
  Age: 57 Year
  Sex: Male
  Weight: 65 kg

DRUGS (7)
  1. FOLINIC ACID [Suspect]
     Active Substance: LEUCOVORIN
     Route: 065
     Dates: start: 20170201, end: 20170723
  2. FLUOROURACIL SANDOZ [Suspect]
     Active Substance: FLUOROURACIL
     Indication: PANCREATIC NEUROENDOCRINE TUMOUR METASTATIC
     Route: 065
     Dates: start: 20170201, end: 20170723
  3. SUNITINIB MALATE. [Suspect]
     Active Substance: SUNITINIB MALATE
     Indication: PANCREATIC NEUROENDOCRINE TUMOUR METASTATIC
     Route: 065
     Dates: start: 20151207, end: 20170116
  4. OXALIPLATIN (MANUFACTURER UNKNOWN) [Suspect]
     Active Substance: OXALIPLATIN
     Indication: PANCREATIC NEUROENDOCRINE TUMOUR METASTATIC
     Route: 065
     Dates: start: 20170201, end: 20170723
  5. FOLINIC ACID [Suspect]
     Active Substance: LEUCOVORIN
     Indication: PANCREATIC NEUROENDOCRINE TUMOUR METASTATIC
     Route: 065
     Dates: start: 20170724
  6. FLUOROURACIL SANDOZ [Suspect]
     Active Substance: FLUOROURACIL
     Route: 065
     Dates: start: 20170724
  7. INSULIN [Concomitant]
     Active Substance: INSULIN NOS
     Indication: TYPE 2 DIABETES MELLITUS
     Route: 065

REACTIONS (12)
  - Hypercalcaemia [Recovering/Resolving]
  - Hypoglycaemia [Recovered/Resolved]
  - Sepsis [Recovered/Resolved]
  - Paraesthesia [Not Recovered/Not Resolved]
  - Endocarditis [Recovering/Resolving]
  - Intestinal obstruction [Unknown]
  - Abdominal pain [Unknown]
  - Diarrhoea [Recovered/Resolved]
  - General physical health deterioration [Unknown]
  - Vomiting [Recovered/Resolved]
  - Hypercalcaemia [Not Recovered/Not Resolved]
  - Hypokalaemia [Recovered/Resolved]

NARRATIVE: CASE EVENT DATE: 2016
